FAERS Safety Report 4497093-2 (Version None)
Quarter: 2004Q4

REPORT INFORMATION
  Report Type: 
  Country: None (occurrence: None)
  Receive Date: 20041110
  Receipt Date: 20041102
  Transmission Date: 20050328
  Serious: Yes (Death)
  Sender: FDA-Public Use
  Company Number: US-JNJFOC-20041005761

PATIENT
  Sex: Female

DRUGS (1)
  1. REMICADE [Suspect]
     Indication: CROHN'S DISEASE
     Dosage: SUMMER 2003
     Route: 042

REACTIONS (3)
  - MALIGNANT NEOPLASM PROGRESSION [None]
  - NON-HODGKIN'S LYMPHOMA [None]
  - T-CELL LYMPHOMA [None]
